FAERS Safety Report 9891375 (Version 3)
Quarter: 2014Q2

REPORT INFORMATION
  Report Type: Spontaneous
  Country: US (occurrence: US)
  Receive Date: 20140212
  Receipt Date: 20140603
  Transmission Date: 20141212
  Serious: No
  Sender: FDA-Public Use
  Company Number: US-PFIZER INC-2014037154

PATIENT
  Age: 56 Year
  Sex: Female
  Weight: 68.03 kg

DRUGS (19)
  1. XELJANZ [Suspect]
     Indication: RHEUMATOID ARTHRITIS
     Dosage: 5 MG, 2X/DAY
     Route: 048
     Dates: start: 201310
  2. XELJANZ [Suspect]
     Dosage: 5 MG, 1X/DAY
     Route: 048
  3. ALEVE [Concomitant]
     Dosage: UNK
  4. DIPHENHYDRAMINE HCL [Concomitant]
     Dosage: UNK
  5. LORATADINE [Concomitant]
     Dosage: UNK
  6. MAGNESIUM [Concomitant]
     Dosage: UNK
  7. PRILOSEC [Concomitant]
     Dosage: UNK
  8. TYLENOL [Concomitant]
     Dosage: UNK
  9. VITAMIN B COMPLEX [Concomitant]
     Dosage: UNK
  10. TRIAMTERENE [Concomitant]
     Dosage: UNK
  11. METHOTREXATE [Concomitant]
     Dosage: UNK
  12. VERAPAMIL HYDROCHLORIDE [Concomitant]
     Dosage: UNK
  13. TIZANIDINE [Concomitant]
     Dosage: UNK
  14. FLUOXETINE [Concomitant]
     Dosage: UNK
  15. PREDNISONE [Concomitant]
     Dosage: UNK
  16. MONTELUKAST [Concomitant]
     Dosage: UNK
  17. DESIPRAMINE [Concomitant]
     Dosage: UNK
  18. SUMATRIPTAN [Concomitant]
     Dosage: UNK
  19. BOTOX [Concomitant]
     Dosage: UNK

REACTIONS (3)
  - Vision blurred [Unknown]
  - Fatigue [Recovered/Resolved]
  - Pain [Unknown]
